FAERS Safety Report 4286754-6 (Version None)
Quarter: 2004Q1

REPORT INFORMATION
  Report Type: 
  Country: None (occurrence: None)
  Receive Date: 20040206
  Receipt Date: 20040126
  Transmission Date: 20041129
  Serious: Yes (Hospitalization)
  Sender: FDA-Public Use
  Company Number: JP-GLAXOSMITHKLINE-B0321288A

PATIENT
  Age: 83 Year
  Sex: Female

DRUGS (3)
  1. ACYCLOVIR [Suspect]
     Route: 042
     Dates: start: 20040115
  2. CLINDAMYCIN HYDROCHLORIDE [Concomitant]
     Route: 048
  3. FAMOTIDINE [Concomitant]
     Route: 065

REACTIONS (1)
  - RESPIRATORY DEPRESSION [None]
